FAERS Safety Report 7478480-7 (Version None)
Quarter: 2011Q2

REPORT INFORMATION
  Report Type: 
  Country: None (occurrence: None)
  Receive Date: 20110513
  Receipt Date: 20100602
  Transmission Date: 20111010
  Serious: Yes (Other)
  Sender: FDA-Public Use
  Company Number: US-PFIZER INC-2010051270

PATIENT
  Age: 82 Year
  Sex: Female
  Weight: 92.063 kg

DRUGS (1)
  1. CELEBREX [Suspect]
     Indication: GOUT
     Dosage: 200 MG, 1X/DAY
     Dates: start: 20090701, end: 20100420

REACTIONS (3)
  - CEREBROVASCULAR ACCIDENT [None]
  - TRANSIENT ISCHAEMIC ATTACK [None]
  - DYSARTHRIA [None]
